FAERS Safety Report 5735830-7 (Version None)
Quarter: 2008Q2

REPORT INFORMATION
  Report Type: 
  Country: None (occurrence: None)
  Receive Date: 20080508
  Receipt Date: 20080508
  Transmission Date: 20081010
  Serious: No
  Sender: FDA-Public Use
  Company Number: None

PATIENT
  Age: 62 Year
  Sex: Male
  Weight: 105.2345 kg

DRUGS (1)
  1. CHANTIX [Suspect]
     Dates: start: 20060101, end: 20060201

REACTIONS (6)
  - ABNORMAL DREAMS [None]
  - ASTHENIA [None]
  - FATIGUE [None]
  - INSOMNIA [None]
  - NIGHTMARE [None]
  - SUICIDAL IDEATION [None]
